FAERS Safety Report 15538578 (Version 1)
Quarter: 2018Q4

REPORT INFORMATION
  Report Type: Report from Study
  Country: US (occurrence: US)
  Receive Date: 20181022
  Receipt Date: 20181022
  Transmission Date: 20190205
  Serious: Yes (Hospitalization, Other)
  Sender: FDA-Public Use
  Company Number: US-PFIZER INC-2018388783

PATIENT
  Age: 16 Year
  Sex: Female
  Weight: 58.3 kg

DRUGS (27)
  1. VINCRISTINE SULFATE. [Suspect]
     Active Substance: VINCRISTINE SULFATE
     Dosage: 1 MG, DAY 1 OF CYCLE 10
     Route: 042
     Dates: end: 20180827
  2. FAMOTIDINE. [Concomitant]
     Active Substance: FAMOTIDINE
  3. ONDANSETRON [Concomitant]
     Active Substance: ONDANSETRON
  4. OXYCODONE [Concomitant]
     Active Substance: OXYCODONE
  5. CYCLOPHOSPHAMIDE. [Suspect]
     Active Substance: CYCLOPHOSPHAMIDE
     Indication: ALVEOLAR RHABDOMYOSARCOMA
     Dosage: 1200 MG/M2, ON DAY 1 OF CYCLES 1,3,5 AND 8
     Route: 042
     Dates: start: 20180211
  6. DIPHENHYDRAMINE. [Concomitant]
     Active Substance: DIPHENHYDRAMINE
  7. VINCRISTINE SULFATE. [Suspect]
     Active Substance: VINCRISTINE SULFATE
     Indication: ALVEOLAR RHABDOMYOSARCOMA
     Dosage: 1.5 MG/M2, ON DAYS 1, 8, AND 15 OF CYCLES 1-4
     Route: 042
     Dates: start: 20180211
  8. VINCRISTINE SULFATE. [Suspect]
     Active Substance: VINCRISTINE SULFATE
     Dosage: 1.5 MG/M2, DAY 1 OF CYCLE 5, DAY 1 AND 8 OF CYCLES 6 AND 7 AND 9, DAY 1,8,15 OF CYCLE 8
     Route: 042
  9. TEMSIROLIMUS. [Suspect]
     Active Substance: TEMSIROLIMUS
     Indication: ALVEOLAR RHABDOMYOSARCOMA
     Dosage: 15 MG/M2, ON DAYS 1, 8,15 OF CYCLE 1-4, 8 AND 9
     Route: 042
     Dates: start: 20180211
  10. TEMSIROLIMUS. [Suspect]
     Active Substance: TEMSIROLIMUS
     Dosage: 24 MG, ON DAYS 1, 8, AND 15 OF CYCLE 10
     Route: 042
     Dates: end: 20180827
  11. CYCLOPHOSPHAMIDE. [Suspect]
     Active Substance: CYCLOPHOSPHAMIDE
     Dosage: 1992 MG, ON DAY 1 OF CYCLE 10
     Route: 042
     Dates: start: 20180827, end: 20180827
  12. CAMPTOSAR [Suspect]
     Active Substance: IRINOTECAN HYDROCHLORIDE
     Indication: ALVEOLAR RHABDOMYOSARCOMA
     Dosage: 50 MG/M2, ON DAYS 1-5 OF CYCLES 2,4,6,7 AND 9
     Route: 042
     Dates: start: 20180211, end: 20180827
  13. DACTINOMYCIN [Suspect]
     Active Substance: DACTINOMYCIN
     Dosage: 2.5 MG, DAY 1 OF CYCLE 10
     Route: 042
     Dates: end: 20180827
  14. ESCITALOPRAM [Concomitant]
     Active Substance: ESCITALOPRAM OXALATE
  15. LACTOBACILLUS RHAMNOSUS GG [Concomitant]
  16. DOCUSATE SODIUM. [Concomitant]
     Active Substance: DOCUSATE SODIUM
  17. MEGESTROL [Concomitant]
     Active Substance: MEGESTROL
  18. NORGESTIMATE AND ETHINYL ESTRADIOL [Concomitant]
     Active Substance: ETHINYL ESTRADIOL\NORGESTIMATE
  19. SCOPOLAMINE AMINOXIDE [Concomitant]
  20. SENNA ALEXANDRINA [Concomitant]
     Active Substance: SENNA LEAF
  21. SULFAMETHOXAZOLE AND TRIMETHOPRIM [Concomitant]
     Active Substance: SULFAMETHOXAZOLE\TRIMETHOPRIM
  22. LIDOCAINE PRILOCAINE [Concomitant]
     Active Substance: LIDOCAINE\PRILOCAINE
  23. LORAZEPAM. [Concomitant]
     Active Substance: LORAZEPAM
  24. METOCLOPRAMIDE. [Concomitant]
     Active Substance: METOCLOPRAMIDE
  25. DACTINOMYCIN [Suspect]
     Active Substance: DACTINOMYCIN
     Indication: ALVEOLAR RHABDOMYOSARCOMA
     Dosage: 0.05 MG/KG, ON DAY 1 OF CYCLES 1,3 , 5 AND 8
     Route: 042
     Dates: start: 20180211
  26. GABAPENTIN. [Concomitant]
     Active Substance: GABAPENTIN
  27. LOPERAMIDE [Concomitant]
     Active Substance: LOPERAMIDE

REACTIONS (4)
  - Platelet count decreased [Recovered/Resolved]
  - Neutropenia [Unknown]
  - Stomatitis [Unknown]
  - Enterocolitis [Not Recovered/Not Resolved]

NARRATIVE: CASE EVENT DATE: 20180904
